FAERS Safety Report 8094984-0 (Version None)
Quarter: 2012Q1

REPORT INFORMATION
  Report Type: 
  Country: None (occurrence: None)
  Receive Date: 20120131
  Receipt Date: 20120126
  Transmission Date: 20120608
  Serious: No
  Sender: FDA-Public Use
  Company Number: US-BAYER-2012-009287

PATIENT
  Age: 83 Year
  Sex: Male
  Weight: 76 kg

DRUGS (1)
  1. ALEVE (CAPLET) [Suspect]
     Dosage: 2 TAB
     Dates: start: 20110126

REACTIONS (1)
  - PAIN [None]
